FAERS Safety Report 6784334-1 (Version None)
Quarter: 2010Q2

REPORT INFORMATION
  Report Type: 
  Country: None (occurrence: None)
  Receive Date: 20100622
  Receipt Date: 20100614
  Transmission Date: 20101027
  Serious: No
  Sender: FDA-Public Use
  Company Number: BR-TEVA-236932ISR

PATIENT
  Age: 30 Year
  Sex: Female
  Weight: 56.6 kg

DRUGS (6)
  1. METHOTREXATE [Suspect]
     Indication: RHEUMATOID ARTHRITIS
     Route: 048
     Dates: start: 20071106
  2. CP-690,550 (TASOCITINIB) [Suspect]
     Route: 048
     Dates: start: 20080605
  3. FOLIC ACID [Concomitant]
     Dates: start: 20060901
  4. DICLOFENAC SODIUM [Concomitant]
     Dates: start: 20070401
  5. DIAZEPAM [Concomitant]
     Dates: start: 20080529
  6. LEVONORGESTREL AND ETHINYL ESTRADIOL [Concomitant]
     Dates: start: 20030101

REACTIONS (1)
  - CERVICAL DYSPLASIA [None]
